FAERS Safety Report 16112477 (Version 1)
Quarter: 2019Q1

REPORT INFORMATION
  Report Type: Spontaneous
  Country: US (occurrence: US)
  Receive Date: 20190325
  Receipt Date: 20190325
  Transmission Date: 20190418
  Serious: No
  Sender: FDA-Public Use
  Company Number: US-PFIZER INC-2019117874

PATIENT
  Sex: Male

DRUGS (1)
  1. CHANTIX [Suspect]
     Active Substance: VARENICLINE TARTRATE
     Dosage: UNK (TWO HALF DOSES)

REACTIONS (4)
  - Erythema [Unknown]
  - Drug ineffective [Unknown]
  - Pruritus generalised [Unknown]
  - Product dose omission [Unknown]
